FAERS Safety Report 16097524 (Version 1)
Quarter: 2019Q1

REPORT INFORMATION
  Report Type: Spontaneous
  Country: TR (occurrence: TR)
  Receive Date: 20190320
  Receipt Date: 20190320
  Transmission Date: 20190418
  Serious: Yes (Hospitalization, Other)
  Sender: FDA-Public Use
  Company Number: TR-PFIZER INC-2019115690

PATIENT
  Sex: Male

DRUGS (4)
  1. ZESTAT [MIRTAZAPINE] [Suspect]
     Active Substance: MIRTAZAPINE
     Indication: DEPRESSION
     Dosage: 15 MG, 1X/DAY
  2. ZESTAT [MIRTAZAPINE] [Suspect]
     Active Substance: MIRTAZAPINE
     Dosage: 15 MG, 1X/DAY
     Dates: start: 20190219, end: 20190220
  3. EFFEXOR XR [Suspect]
     Active Substance: VENLAFAXINE HYDROCHLORIDE
     Indication: DEPRESSION
     Dosage: 37.5 MG, DAILY
  4. EFFEXOR XR [Suspect]
     Active Substance: VENLAFAXINE HYDROCHLORIDE
     Dosage: 37.5 MG, DAILY
     Dates: start: 20190219, end: 20190220

REACTIONS (6)
  - Hypersomnia [Unknown]
  - Hypersomnia [Recovered/Resolved]
  - Mastication disorder [Unknown]
  - Lung infection [Unknown]
  - Sepsis [Unknown]
  - Gait disturbance [Unknown]
